FAERS Safety Report 25814042 (Version 2)
Quarter: 2025Q4

REPORT INFORMATION
  Report Type: Spontaneous
  Country: JP (occurrence: JP)
  Receive Date: 20250917
  Receipt Date: 20251028
  Transmission Date: 20260117
  Serious: Yes (Hospitalization, Other)
  Sender: CSL BEHRING
  Company Number: JP-BEH-2025218872

PATIENT
  Age: 85 Year
  Sex: Male

DRUGS (1)
  1. KORSUVA [Suspect]
     Active Substance: DIFELIKEFALIN ACETATE
     Indication: Pruritus
     Dosage: 17.5 ?G
     Route: 042

REACTIONS (2)
  - Marasmus [Unknown]
  - Delirium [Unknown]
